FAERS Safety Report 9351635 (Version 5)
Quarter: 2014Q1

REPORT INFORMATION
  Report Type: Spontaneous
  Country: US (occurrence: US)
  Receive Date: 20130617
  Receipt Date: 20140106
  Transmission Date: 20141002
  Serious: Yes (Other)
  Sender: FDA-Public Use
  Company Number: US-PFIZER INC-2013179059

PATIENT
  Sex: Male

DRUGS (6)
  1. LIPITOR [Suspect]
     Dosage: 10 MG, UNK
     Dates: start: 1998
  2. LIPITOR [Suspect]
     Dosage: UNK
     Dates: start: 1999
  3. LIPITOR [Suspect]
     Dosage: 40 MG, UNK
  4. LIPITOR [Suspect]
     Dosage: 20 MG, UNK
  5. ZOCOR [Suspect]
     Dosage: UNK
  6. LOVASTATIN [Suspect]
     Dosage: UNK

REACTIONS (3)
  - Cranial nerve disorder [Recovered/Resolved]
  - Vision blurred [Unknown]
  - Pain [Unknown]
